FAERS Safety Report 12828805 (Version 1)
Quarter: 2016Q4

REPORT INFORMATION
  Report Type: Spontaneous
  Country: US (occurrence: US)
  Receive Date: 20161007
  Receipt Date: 20161007
  Transmission Date: 20170207
  Serious: Yes (Other)
  Sender: FDA-Public Use
  Company Number: US-SA-2015SA162348

PATIENT
  Age: 61 Year
  Sex: Female

DRUGS (3)
  1. WELLBUTRIN [Concomitant]
     Active Substance: BUPROPION HYDROCHLORIDE
  2. AMITRIPTYLINE HYDROCHLORIDE. [Concomitant]
     Active Substance: AMITRIPTYLINE HYDROCHLORIDE
  3. AUBAGIO [Suspect]
     Active Substance: TERIFLUNOMIDE
     Indication: MULTIPLE SCLEROSIS
     Route: 048

REACTIONS (17)
  - Multiple sclerosis relapse [Unknown]
  - Motion sickness [Unknown]
  - Condition aggravated [Unknown]
  - Pruritus [Unknown]
  - Vertigo [Unknown]
  - Headache [Unknown]
  - Dizziness [Unknown]
  - Vomiting [Unknown]
  - Asthenia [Unknown]
  - Urinary incontinence [Unknown]
  - Liver function test increased [Unknown]
  - Hepatic enzyme increased [Unknown]
  - Blood pressure fluctuation [Unknown]
  - Hypertension [Unknown]
  - Migraine [Unknown]
  - Night sweats [Unknown]
  - Fatigue [Unknown]

NARRATIVE: CASE EVENT DATE: 201510
